FAERS Safety Report 23093747 (Version 1)
Quarter: 2023Q4

REPORT INFORMATION
  Report Type: Spontaneous
  Country: US (occurrence: US)
  Receive Date: 20231023
  Receipt Date: 20231023
  Transmission Date: 20240110
  Serious: No
  Sender: FDA-Public Use
  Company Number: US-Teikoku Pharma USA-TPU2023-00549

PATIENT
  Sex: Female
  Weight: 61.29 kg

DRUGS (6)
  1. LIDODERM [Suspect]
     Active Substance: LIDOCAINE
     Indication: Rotator cuff syndrome
     Route: 061
     Dates: start: 20151118
  2. LIDODERM [Suspect]
     Active Substance: LIDOCAINE
     Indication: Tendon disorder
  3. LIDODERM [Suspect]
     Active Substance: LIDOCAINE
     Indication: Medical device implantation
  4. LIDOCAINE PATCH [Suspect]
     Active Substance: LIDOCAINE
     Indication: Rotator cuff syndrome
     Route: 061
  5. LIDOCAINE PATCH [Suspect]
     Active Substance: LIDOCAINE
     Indication: Tendon disorder
  6. LIDOCAINE PATCH [Suspect]
     Active Substance: LIDOCAINE
     Indication: Medical device implantation

REACTIONS (2)
  - Peripheral swelling [Unknown]
  - Drug ineffective for unapproved indication [Unknown]
